FAERS Safety Report 12050023 (Version 3)
Quarter: 2016Q3

REPORT INFORMATION
  Report Type: Spontaneous
  Country: BR (occurrence: BR)
  Receive Date: 20160208
  Receipt Date: 20160811
  Transmission Date: 20161109
  Serious: Yes (Death, Hospitalization, Disabling)
  Sender: FDA-Public Use
  Company Number: BR-B.I. PHARMACEUTICALS,INC./RIDGEFIELD-2016-BI-06700BR

PATIENT
  Age: 90 Year
  Sex: Female
  Weight: 70 kg

DRUGS (10)
  1. PRADAXA [Suspect]
     Active Substance: DABIGATRAN ETEXILATE MESYLATE
     Dosage: 110 MG
     Route: 048
     Dates: start: 20160111, end: 20160708
  2. SUSTRATE [Concomitant]
     Active Substance: PROPATYL NITRATE
     Indication: CARDIOVASCULAR DISORDER
     Dosage: 5 MG
     Route: 048
     Dates: start: 2012
  3. VASOGARD [Concomitant]
     Active Substance: CILOSTAZOL
     Indication: ANGIOPATHY
     Dosage: 50 MG
     Route: 048
     Dates: start: 2012
  4. PRADAXA [Suspect]
     Active Substance: DABIGATRAN ETEXILATE MESYLATE
     Dosage: 150 MG
     Route: 048
     Dates: end: 201601
  5. CRESTOR [Concomitant]
     Active Substance: ROSUVASTATIN CALCIUM
     Indication: BLOOD CHOLESTEROL INCREASED
     Dosage: 60 MG
     Route: 048
     Dates: start: 2012
  6. MICARDIS [Concomitant]
     Active Substance: TELMISARTAN
     Indication: HYPERTENSION
     Dosage: 80 MG
     Route: 065
     Dates: start: 2012
  7. LANTUS [Concomitant]
     Active Substance: INSULIN GLARGINE
     Indication: TYPE 2 DIABETES MELLITUS
     Dosage: 20 MG
     Route: 058
     Dates: start: 2011
  8. HUMALOG [Concomitant]
     Active Substance: INSULIN LISPRO
     Indication: TYPE 2 DIABETES MELLITUS
     Dosage: FORMULATION: INJECTABLE
     Route: 058
     Dates: start: 2011
  9. PRADAXA [Suspect]
     Active Substance: DABIGATRAN ETEXILATE MESYLATE
     Indication: CEREBROVASCULAR ACCIDENT PROPHYLAXIS
     Dosage: 75 MG
     Route: 048
     Dates: start: 2012
  10. CONCOR [Concomitant]
     Active Substance: BISOPROLOL FUMARATE
     Indication: PRODUCT USED FOR UNKNOWN INDICATION
     Dosage: 5 MG
     Route: 048
     Dates: start: 2012

REACTIONS (8)
  - Infection [Fatal]
  - Movement disorder [Not Recovered/Not Resolved]
  - Blister [Not Recovered/Not Resolved]
  - Respiratory tract infection [Fatal]
  - Aphasia [Not Recovered/Not Resolved]
  - Haematochezia [Recovered/Resolved]
  - Ischaemic stroke [Recovered/Resolved]
  - Skin sensitisation [Not Recovered/Not Resolved]

NARRATIVE: CASE EVENT DATE: 201508
